FAERS Safety Report 12705917 (Version 4)
Quarter: 2016Q4

REPORT INFORMATION
  Report Type: Report from Study
  Country: None (occurrence: US)
  Receive Date: 20160901
  Receipt Date: 20161022
  Transmission Date: 20170207
  Serious: Yes (Hospitalization, Other)
  Sender: FDA-Public Use
  Company Number: US-ABBVIE-16K-163-1714317-00

PATIENT
  Age: 44 Year
  Sex: Male
  Weight: 90.8 kg

DRUGS (3)
  1. HUMIRA [Suspect]
     Active Substance: ADALIMUMAB
     Indication: PSORIASIS
     Route: 058
     Dates: start: 201501
  2. HUMIRA [Suspect]
     Active Substance: ADALIMUMAB
     Indication: PSORIATIC ARTHROPATHY
     Route: 058
     Dates: start: 2013, end: 201409
  3. HUMIRA [Suspect]
     Active Substance: ADALIMUMAB
     Indication: CROHN^S DISEASE

REACTIONS (22)
  - Hypoaesthesia [Recovering/Resolving]
  - Spinal cord infection [Recovering/Resolving]
  - Bone tuberculosis [Recovered/Resolved]
  - Lethargy [Not Recovered/Not Resolved]
  - Papule [Recovered/Resolved]
  - Injection site induration [Not Recovered/Not Resolved]
  - Visual acuity reduced [Recovered/Resolved]
  - Systemic inflammatory response syndrome [Recovering/Resolving]
  - Head discomfort [Recovered/Resolved]
  - Peripheral swelling [Recovered/Resolved]
  - Infection [Unknown]
  - Spinal cord compression [Recovering/Resolving]
  - Paraparesis [Recovering/Resolving]
  - Aphasia [Recovered/Resolved]
  - Cervical radiculopathy [Recovered/Resolved]
  - Oedema peripheral [Recovered/Resolved]
  - Peripheral swelling [Unknown]
  - Tuberculosis [Recovering/Resolving]
  - Malaise [Not Recovered/Not Resolved]
  - Migraine [Recovered/Resolved]
  - Tuberculosis [Recovered/Resolved]
  - Fatigue [Unknown]

NARRATIVE: CASE EVENT DATE: 2013
